FAERS Safety Report 19531560 (Version 1)
Quarter: 2021Q3

REPORT INFORMATION
  Report Type: Spontaneous
  Country: CN (occurrence: CN)
  Receive Date: 20210713
  Receipt Date: 20210713
  Transmission Date: 20211014
  Serious: Yes (Life-Threatening, Hospitalization)
  Sender: FDA-Public Use
  Company Number: CN-PFIZER INC-2021862943

PATIENT
  Age: 75 Year
  Sex: Female
  Weight: 45 kg

DRUGS (8)
  1. CEFAMANDOLE NAFATE SODIUM [Suspect]
     Active Substance: CEFAMANDOLE NAFATE
     Indication: PNEUMONIA
     Dosage: 1 G, 3X/DAY
     Route: 041
     Dates: start: 20210520, end: 20210525
  2. FLUCONAZOLE. [Suspect]
     Active Substance: FLUCONAZOLE
     Indication: PROPHYLAXIS
     Dosage: 0.2 G, 1X/DAY
     Route: 041
     Dates: start: 20210611, end: 20210616
  3. LEVOFLOXACIN. [Suspect]
     Active Substance: LEVOFLOXACIN
     Indication: PNEUMONIA
     Dosage: 0.5 G, 1X/DAY
     Route: 041
     Dates: start: 20210616, end: 20210624
  4. SODIUM CHLORIDE. [Concomitant]
     Active Substance: SODIUM CHLORIDE
     Indication: PNEUMONIA
     Dosage: 100 ML, 3X/DAY
     Route: 041
     Dates: start: 20210520, end: 20210624
  5. SULPERAZON [Suspect]
     Active Substance: CEFOPERAZONE SODIUM\SULBACTAM SODIUM
     Indication: PNEUMONIA
     Dosage: 3 G, 3X/DAY
     Route: 041
     Dates: start: 20210525, end: 20210612
  6. MOXIFLOXACIN. [Suspect]
     Active Substance: MOXIFLOXACIN
     Indication: PNEUMONIA
     Dosage: 0.4 G, 1X/DAY
     Route: 041
     Dates: start: 20210612, end: 20210616
  7. GLUCOSE [Concomitant]
     Active Substance: DEXTROSE
     Indication: PNEUMONIA
     Dosage: 250 ML, 1X/DAY
     Route: 041
     Dates: start: 20210612, end: 20210624
  8. PIPERACILLIN/TAZOBACTAM [Suspect]
     Active Substance: PIPERACILLIN SODIUM\TAZOBACTAM SODIUM
     Indication: PNEUMONIA
     Dosage: 4.5 G, 3X/DAY
     Route: 041
     Dates: start: 20210616, end: 20210624

REACTIONS (20)
  - Neutrophil percentage increased [Recovered/Resolved]
  - Haemoglobin decreased [Recovered/Resolved]
  - Platelet count decreased [Recovered/Resolved]
  - Activated partial thromboplastin time prolonged [Recovered/Resolved]
  - Blood sodium decreased [Recovered/Resolved]
  - Procalcitonin increased [Recovering/Resolving]
  - Coagulopathy [Recovered/Resolved]
  - Neutrophil count increased [Recovered/Resolved]
  - Atrial natriuretic peptide increased [Recovered/Resolved]
  - International normalised ratio increased [Recovered/Resolved]
  - White blood cell count increased [Recovered/Resolved]
  - Red blood cell count decreased [Recovered/Resolved]
  - Fibrin D dimer increased [Recovered/Resolved]
  - Blood magnesium decreased [Recovered/Resolved]
  - Blood phosphorus decreased [Recovered/Resolved]
  - Prothrombin time prolonged [Recovered/Resolved]
  - Haematocrit decreased [Recovered/Resolved]
  - Blood calcium decreased [Recovered/Resolved]
  - Blood potassium decreased [Recovered/Resolved]
  - Off label use [Unknown]

NARRATIVE: CASE EVENT DATE: 20210525
